FAERS Safety Report 4421379-0 (Version None)
Quarter: 2004Q3

REPORT INFORMATION
  Report Type: 
  Country: None (occurrence: None)
  Receive Date: 20040804
  Receipt Date: 20040721
  Transmission Date: 20050211
  Serious: Yes (Death, Life-Threatening, Hospitalization)
  Sender: FDA-Public Use
  Company Number: 2004AP02966

PATIENT
  Age: 64 Year
  Sex: Female

DRUGS (9)
  1. TENORMIN [Suspect]
     Indication: HYPERTENSION
     Dosage: 25 MG DAILY PO
     Route: 048
     Dates: start: 20000101
  2. LEVERCOL [Suspect]
     Indication: NUTRITIONAL SUPPORT
     Dosage: 40 ML DAILY PO
     Route: 048
     Dates: start: 19890101
  3. PROMAC [Suspect]
     Indication: DYSGEUSIA
     Dosage: 1 DF DAILY PO
     Route: 048
     Dates: start: 20010101
  4. COBAMAMIDE [Suspect]
     Indication: MUSCULOSKELETAL STIFFNESS
     Dosage: 1 MG DAILY PO
     Route: 048
     Dates: start: 20020101
  5. GO-OU-SEISHINGEN [Suspect]
     Indication: NUTRITIONAL SUPPORT
  6. BAYLOTENSIN [Concomitant]
  7. JUVELA [Concomitant]
  8. SEISHIN-RENSI-IN [Concomitant]
  9. INCHIN-KO-TO [Concomitant]

REACTIONS (6)
  - DYSGEUSIA [None]
  - HEPATITIS FULMINANT [None]
  - HEPATOCELLULAR DAMAGE [None]
  - MUSCULOSKELETAL STIFFNESS [None]
  - THERAPY NON-RESPONDER [None]
  - WHITE BLOOD CELL COUNT DECREASED [None]
